FAERS Safety Report 23171006 (Version 1)
Quarter: 2023Q4

REPORT INFORMATION
  Report Type: Spontaneous
  Country: CN (occurrence: CN)
  Receive Date: 20231110
  Receipt Date: 20231110
  Transmission Date: 20240109
  Serious: Yes (Other)
  Sender: FDA-Public Use
  Company Number: CN-BEH-2023165095

PATIENT
  Age: 87 Year
  Sex: Male
  Weight: 50 kg

DRUGS (1)
  1. ALBURX [Suspect]
     Active Substance: ALBUMIN HUMAN
     Indication: Hypoproteinaemia
     Dosage: 10 GRAM, OD
     Route: 041
     Dates: start: 20231030, end: 20231030

REACTIONS (3)
  - Blood volume expansion [Recovering/Resolving]
  - Pulmonary oedema [Recovering/Resolving]
  - Tachypnoea [Recovering/Resolving]

NARRATIVE: CASE EVENT DATE: 20231030
